FAERS Safety Report 25951176 (Version 1)
Quarter: 2025Q4

REPORT INFORMATION
  Report Type: Spontaneous
  Country: US (occurrence: US)
  Receive Date: 20251023
  Receipt Date: 20251023
  Transmission Date: 20260118
  Serious: No
  Sender: ROCHE
  Company Number: US-ROCHE-10000412581

PATIENT
  Sex: Female
  Weight: 66.22 kg

DRUGS (1)
  1. HEMLIBRA [Suspect]
     Active Substance: EMICIZUMAB-KXWH
     Indication: Factor VIII deficiency
     Dosage: MAINTENANCE: 6 MG/KG SQ ONCE EVERY 4 WEEKS
     Route: 058

REACTIONS (3)
  - No adverse event [Unknown]
  - Off label use [Unknown]
  - Off label use [Unknown]
